FAERS Safety Report 6669785-8 (Version None)
Quarter: 2010Q2

REPORT INFORMATION
  Report Type: 
  Country: None (occurrence: None)
  Receive Date: 20100402
  Receipt Date: 20100319
  Transmission Date: 20101027
  Serious: Yes (Other)
  Sender: FDA-Public Use
  Company Number: CIP10000338

PATIENT
  Age: 76 Year
  Sex: Female

DRUGS (1)
  1. DIDRONEL [Suspect]
     Indication: OSTEOPOROSIS
     Dosage: ORAL
     Route: 048
     Dates: start: 20050501, end: 20091201

REACTIONS (6)
  - CONDITION AGGRAVATED [None]
  - INTERSTITIAL LUNG DISEASE [None]
  - NERVOUSNESS [None]
  - PULMONARY FIBROSIS [None]
  - REFLUX OESOPHAGITIS [None]
  - THROAT IRRITATION [None]
